FAERS Safety Report 17235279 (Version 1)
Quarter: 2020Q1

REPORT INFORMATION
  Report Type: Spontaneous
  Country: US (occurrence: US)
  Receive Date: 20200103
  Receipt Date: 20200103
  Transmission Date: 20200409
  Serious: Yes (Other)
  Sender: FDA-Public Use
  Company Number: None

PATIENT
  Age: 34 Year
  Sex: Female
  Weight: 64.35 kg

DRUGS (3)
  1. CIMZIA [Suspect]
     Active Substance: CERTOLIZUMAB PEGOL
     Indication: PSORIATIC ARTHROPATHY
     Dosage: ?          QUANTITY:1 INJECTION(S);OTHER FREQUENCY:EVERY 2 WEEKS;?
     Route: 058
     Dates: start: 20191206, end: 20191206
  2. LIMBITTOL [Concomitant]
  3. VIT D [Concomitant]
     Active Substance: VITAMIN D NOS

REACTIONS (2)
  - Lupus vasculitis [None]
  - Lupus-like syndrome [None]

NARRATIVE: CASE EVENT DATE: 20191206
